FAERS Safety Report 13433169 (Version 1)
Quarter: 2017Q2

REPORT INFORMATION
  Report Type: Spontaneous
  Country: NL (occurrence: NL)
  Receive Date: 20170412
  Receipt Date: 20170412
  Transmission Date: 20170830
  Serious: Yes (Hospitalization)
  Sender: FDA-Public Use
  Company Number: NL-SEBELA IRELAND LIMITED-2017SEB00243

PATIENT
  Age: 51 Year
  Sex: Male

DRUGS (1)
  1. AZATHIOPRINE. [Suspect]
     Active Substance: AZATHIOPRINE
     Indication: AUTOIMMUNE DISORDER
     Dosage: UNK, 1X/DAY
     Route: 065

REACTIONS (3)
  - Septic necrosis [Unknown]
  - Pancytopenia [Unknown]
  - Septic shock [Unknown]
